FAERS Safety Report 7213421-9 (Version None)
Quarter: 2010Q4

REPORT INFORMATION
  Report Type: 
  Country: None (occurrence: None)
  Receive Date: 20101229
  Receipt Date: 20101216
  Transmission Date: 20110411
  Serious: Yes (Other)
  Sender: FDA-Public Use
  Company Number: US-1184471

PATIENT
  Sex: Female
  Weight: 77.1115 kg

DRUGS (4)
  1. AZOPT [Suspect]
     Indication: GLAUCOMA
     Dosage: (1 GTT BID OU OPHTHALMIC)
     Route: 047
  2. ATENOLOL [Concomitant]
  3. LIPITOR [Concomitant]
  4. PRILOSEC [Concomitant]

REACTIONS (4)
  - DIPLOPIA [None]
  - DYSGEUSIA [None]
  - DYSPNOEA [None]
  - NAUSEA [None]
